FAERS Safety Report 13142910 (Version 1)
Quarter: 2017Q1

REPORT INFORMATION
  Report Type: Spontaneous
  Country: US (occurrence: US)
  Receive Date: 20170123
  Receipt Date: 20170123
  Transmission Date: 20170428
  Serious: No
  Sender: FDA-Public Use
  Company Number: None

PATIENT
  Age: 44 Year
  Sex: Male

DRUGS (2)
  1. TACROLIMUS. [Suspect]
     Active Substance: TACROLIMUS
     Indication: PANCREAS TRANSPLANT
     Dosage: DOSE - 0.5MG AND 1MG?FREQUENCY - 0.5MG IN MORNING AND
     Route: 048
     Dates: start: 20140205
  2. TACROLIMUS. [Suspect]
     Active Substance: TACROLIMUS
     Indication: RENAL TRANSPLANT
     Dosage: DOSE - 0.5MG AND 1MG?FREQUENCY - 0.5MG IN MORNING AND
     Route: 048
     Dates: start: 20140205

REACTIONS (2)
  - Bronchitis [None]
  - Pneumonia [None]

NARRATIVE: CASE EVENT DATE: 20161126
